FAERS Safety Report 15396698 (Version 4)
Quarter: 2018Q4

REPORT INFORMATION
  Report Type: Spontaneous
  Country: BR (occurrence: BR)
  Receive Date: 20180918
  Receipt Date: 20181010
  Transmission Date: 20190204
  Serious: Yes (Hospitalization)
  Sender: FDA-Public Use
  Company Number: BR-PFIZER INC-2018357526

PATIENT
  Age: 54 Year
  Sex: Female

DRUGS (2)
  1. FRONTAL [Suspect]
     Active Substance: ALPRAZOLAM
     Indication: SLEEP DISORDER
  2. FRONTAL [Suspect]
     Active Substance: ALPRAZOLAM
     Indication: RELAXATION THERAPY
     Dosage: 0.5 MG, DAILY (1 TABLET A DAY)

REACTIONS (6)
  - Blood pressure increased [Unknown]
  - Tachycardia [Unknown]
  - Cerebrovascular accident [Recovered/Resolved]
  - Therapeutic response unexpected [Unknown]
  - Cardiac disorder [Unknown]
  - Respiratory disorder [Unknown]

NARRATIVE: CASE EVENT DATE: 2011
